FAERS Safety Report 5206540-X (Version None)
Quarter: 2007Q1

REPORT INFORMATION
  Report Type: 
  Country: None (occurrence: None)
  Receive Date: 20070109
  Receipt Date: 20061228
  Transmission Date: 20070707
  Serious: Yes (Disabling)
  Sender: FDA-Public Use
  Company Number: 2006SP002156

PATIENT
  Age: 80 Year
  Sex: Female
  Weight: 54.4316 kg

DRUGS (2)
  1. INTRON A [Suspect]
     Indication: MYCOSIS FUNGOIDES
     Dosage: 1.5 MIU; TIW; SC
     Route: 058
     Dates: start: 20060301, end: 20060901
  2. ARIMIDEX [Concomitant]

REACTIONS (5)
  - BLINDNESS [None]
  - CATARACT [None]
  - MACULAR DEGENERATION [None]
  - MYDRIASIS [None]
  - VISION BLURRED [None]
